FAERS Safety Report 12238379 (Version 3)
Quarter: 2016Q2

REPORT INFORMATION
  Report Type: Spontaneous
  Country: FR (occurrence: FR)
  Receive Date: 20160405
  Receipt Date: 20160616
  Transmission Date: 20160815
  Serious: Yes (Hospitalization, Other)
  Sender: FDA-Public Use
  Company Number: FR-009507513-1603FRA013698

PATIENT
  Age: 79 Year
  Sex: Female

DRUGS (5)
  1. VIRAFERONPEG [Suspect]
     Active Substance: PEGINTERFERON ALFA-2B
     Dosage: 30 MG, EVERY 2 WEEKS
     Route: 058
     Dates: start: 201008, end: 20110315
  2. SOVALDI [Suspect]
     Active Substance: SOFOSBUVIR
     Indication: HEPATITIS C
     Dosage: 1 DF,QD
     Route: 048
     Dates: start: 20140910, end: 20141203
  3. VIRAFERONPEG [Suspect]
     Active Substance: PEGINTERFERON ALFA-2B
     Indication: HEPATITIS C
     Dosage: 30 MG, PER WEEK
     Route: 058
     Dates: start: 1996, end: 2010
  4. SIMEPREVIR [Suspect]
     Active Substance: SIMEPREVIR
     Indication: HEPATITIS C
     Dosage: 1 DF, QD
     Route: 048
     Dates: start: 20140910, end: 20141203
  5. REBETOL [Suspect]
     Active Substance: RIBAVIRIN
     Indication: CHRONIC HEPATITIS C
     Dosage: 200 MG, BID
     Route: 048
     Dates: start: 201004, end: 201211

REACTIONS (1)
  - Acute myeloid leukaemia [Unknown]

NARRATIVE: CASE EVENT DATE: 201510
